FAERS Safety Report 6546050-0 (Version None)
Quarter: 2010Q1

REPORT INFORMATION
  Report Type: 
  Country: None (occurrence: None)
  Receive Date: 20100119
  Receipt Date: 20100104
  Transmission Date: 20100710
  Serious: Yes (Death, Hospitalization)
  Sender: FDA-Public Use
  Company Number: 2009AC000077

PATIENT
  Age: 77 Year
  Sex: Female

DRUGS (31)
  1. DIGOXIN [Suspect]
     Dosage: 625 MCG; QOD; PO
     Route: 048
     Dates: start: 20020123
  2. DIGOXIN [Suspect]
     Dosage: 625 MCG; QOD; PO
     Route: 048
     Dates: start: 20070714
  3. ALDACTONE [Concomitant]
  4. CORDARONE [Concomitant]
  5. POTASSIUM CHLORIDE [Concomitant]
  6. PEPCID [Concomitant]
  7. LIPITOR [Concomitant]
  8. LASIX [Concomitant]
  9. ZOLIPREM [Concomitant]
  10. TRAMADOL [Concomitant]
  11. COREG [Concomitant]
  12. METOCLOPRAMIDE [Concomitant]
  13. PREVACID [Concomitant]
  14. ZOFRAN [Concomitant]
  15. MEGESTROL ACETATE [Concomitant]
  16. COUMADIN [Concomitant]
  17. PACERONE [Concomitant]
  18. GLYCOLAX [Concomitant]
  19. ALPRAZOLAM [Concomitant]
  20. NITROGLYCERIN [Concomitant]
  21. DILTIAZ ER [Concomitant]
  22. PAXIL [Concomitant]
  23. MECLIZINE [Concomitant]
  24. DIOVAN [Concomitant]
  25. OXYCOD/APAP [Concomitant]
  26. PROMETHAZINE [Concomitant]
  27. PRIMIDONE [Concomitant]
  28. ALTACE [Concomitant]
  29. CARDIZEM [Concomitant]
  30. PRILOSEC [Concomitant]
  31. ASPIRIN [Concomitant]

REACTIONS (32)
  - ANGINA PECTORIS [None]
  - ASTHENIA [None]
  - ATRIAL FIBRILLATION [None]
  - BUNDLE BRANCH BLOCK LEFT [None]
  - CARDIAC FAILURE CONGESTIVE [None]
  - CARDIO-RESPIRATORY ARREST [None]
  - CARDIOGENIC SHOCK [None]
  - CARDIORENAL SYNDROME [None]
  - CONFUSIONAL STATE [None]
  - CORONARY ARTERY DISEASE [None]
  - DIARRHOEA [None]
  - ECONOMIC PROBLEM [None]
  - GASTRIC DISORDER [None]
  - HEPATIC ENZYME INCREASED [None]
  - HYPERLIPIDAEMIA [None]
  - HYPERTENSION [None]
  - HYPOKALAEMIA [None]
  - HYPOTENSION [None]
  - INTERNATIONAL NORMALISED RATIO INCREASED [None]
  - ISCHAEMIC CARDIOMYOPATHY [None]
  - MALAISE [None]
  - MITRAL VALVE INCOMPETENCE [None]
  - MULTIPLE INJURIES [None]
  - PAIN [None]
  - PANCREATITIS ACUTE [None]
  - PERIPHERAL VASCULAR DISORDER [None]
  - PHARYNGITIS [None]
  - PLEURAL EFFUSION [None]
  - PULMONARY CONGESTION [None]
  - RENAL FAILURE [None]
  - SICK SINUS SYNDROME [None]
  - VENTRICULAR FIBRILLATION [None]
